FAERS Safety Report 25045932 (Version 2)
Quarter: 2025Q3

REPORT INFORMATION
  Report Type: Report from Study
  Country: CA (occurrence: CA)
  Receive Date: 20250306
  Receipt Date: 20250711
  Transmission Date: 20251021
  Serious: Yes (Other)
  Sender: AMARIN
  Company Number: CA-Amarin Pharma  Inc-2024AMR000344

PATIENT
  Age: 60 Year
  Sex: Female

DRUGS (1)
  1. VASCEPA [Suspect]
     Active Substance: ICOSAPENT ETHYL
     Indication: Cardiovascular event prophylaxis
     Dosage: 1 CAPSULE TWICE DAILY
     Dates: start: 20240403

REACTIONS (4)
  - Hepatic cirrhosis [Unknown]
  - Pneumonia [Not Recovered/Not Resolved]
  - Blood triglycerides increased [Unknown]
  - Off label use [Unknown]

NARRATIVE: CASE EVENT DATE: 20240403
